FAERS Safety Report 22333315 (Version 1)
Quarter: 2023Q2

REPORT INFORMATION
  Report Type: Spontaneous
  Country: US (occurrence: US)
  Receive Date: 20230517
  Receipt Date: 20230517
  Transmission Date: 20230721
  Serious: No
  Sender: FDA-Public Use
  Company Number: US-GILEAD-2023-0628113

PATIENT
  Sex: Male

DRUGS (2)
  1. YESCARTA [Suspect]
     Active Substance: AXICABTAGENE CILOLEUCEL
     Indication: Product used for unknown indication
     Dosage: UNK
     Route: 042
     Dates: start: 20230410, end: 20230410
  2. LEVETIRACETAM [Suspect]
     Active Substance: LEVETIRACETAM
     Indication: Product used for unknown indication
     Dosage: 2 TABLETS 2/DAY FOR 30 DAYS
     Route: 048

REACTIONS (5)
  - Eye disorder [Recovered/Resolved]
  - Ocular discomfort [Not Recovered/Not Resolved]
  - Dry skin [Unknown]
  - Tremor [Unknown]
  - Headache [Recovered/Resolved]
